FAERS Safety Report 26182813 (Version 1)
Quarter: 2025Q4

REPORT INFORMATION
  Report Type: Spontaneous
  Country: EU (occurrence: EU)
  Receive Date: 20251221
  Receipt Date: 20251221
  Transmission Date: 20260118
  Serious: Yes (Disabling, Other)
  Sender: AMGEN
  Company Number: EU-AMGEN-AUTSP2025250878

PATIENT

DRUGS (4)
  1. PROLIA [Suspect]
     Active Substance: DENOSUMAB
     Indication: Osteoporosis postmenopausal
     Dosage: 60 MILLIGRAM, Q6MO INJECTION
     Route: 058
  2. PROLIA [Suspect]
     Active Substance: DENOSUMAB
     Dosage: 60 MILLIGRAM, Q6MO INJECTION
     Route: 058
  3. CALCIUM [Concomitant]
     Active Substance: CALCIUM
     Dosage: 500 MILLIGRAM, QD
     Route: 048
  4. VITAMIN D [Concomitant]
     Active Substance: VITAMIN D NOS
     Dosage: 800 IE DAILY
     Route: 048

REACTIONS (38)
  - Embolism [Unknown]
  - Fracture nonunion [Unknown]
  - Osteomyelitis [Unknown]
  - Disability [Unknown]
  - Adverse event [Unknown]
  - Hip arthroplasty [Unknown]
  - Wrist fracture [Unknown]
  - Fracture delayed union [Unknown]
  - Humerus fracture [Unknown]
  - Foot fracture [Unknown]
  - Ankle fracture [Unknown]
  - Pelvic fracture [Unknown]
  - Radius fracture [Unknown]
  - Ulna fracture [Unknown]
  - Patella fracture [Unknown]
  - Tibia fracture [Unknown]
  - Fibula fracture [Unknown]
  - Sternal fracture [Unknown]
  - Hip fracture [Unknown]
  - Craniofacial fracture [Unknown]
  - Femur fracture [Unknown]
  - Skull fracture [Unknown]
  - Infection [Unknown]
  - Pain [Unknown]
  - Staphylococcal infection [Unknown]
  - Joint range of motion decreased [Unknown]
  - Skin ulcer [Unknown]
  - Back pain [Unknown]
  - Intervertebral disc degeneration [Unknown]
  - Lumbar spinal stenosis [Unknown]
  - Spinal deformity [Unknown]
  - Rib fracture [Unknown]
  - Hand fracture [Unknown]
  - Clavicle fracture [Unknown]
  - Scapula fracture [Unknown]
  - Fractured coccyx [Unknown]
  - Cellulitis [Unknown]
  - Ill-defined disorder [Unknown]
